FAERS Safety Report 9147176 (Version 1)
Quarter: 2013Q1

REPORT INFORMATION
  Report Type: Spontaneous
  Country: TR (occurrence: TR)
  Receive Date: 20130307
  Receipt Date: 20130307
  Transmission Date: 20140127
  Serious: Yes (Other)
  Sender: FDA-Public Use
  Company Number: TR-ELI_LILLY_AND_COMPANY-TR201303000997

PATIENT
  Age: 55 Year
  Sex: Male

DRUGS (6)
  1. CIALIS [Suspect]
     Indication: ERECTILE DYSFUNCTION
     Dosage: 5 MG, QD
     Route: 048
     Dates: start: 20130221
  2. CIALIS [Suspect]
     Dosage: 5 MG, QOD
     Dates: start: 20130227
  3. TAMSULOSINE HCL A [Concomitant]
     Dosage: 0.4 MG, UNKNOWN
     Dates: end: 20130216
  4. POTASSIUM CITRATE [Concomitant]
     Dosage: 1 DF, UNKNOWN
  5. CRESTOR [Concomitant]
     Indication: BLOOD CHOLESTEROL
     Dosage: 1 DF, UNKNOWN
  6. ENALAPRIL [Concomitant]
     Indication: HYPERTENSION
     Dosage: 1 DF, UNKNOWN

REACTIONS (3)
  - Fibromyalgia [Unknown]
  - Headache [Unknown]
  - Back pain [Unknown]
